FAERS Safety Report 9771208 (Version 1)
Quarter: 2013Q4

REPORT INFORMATION
  Report Type: Spontaneous
  Country: US (occurrence: US)
  Receive Date: 20131218
  Receipt Date: 20131218
  Transmission Date: 20140711
  Serious: No
  Sender: FDA-Public Use
  Company Number: US-PFIZER INC-2013357652

PATIENT
  Age: 65 Year
  Sex: Female

DRUGS (4)
  1. ADVIL [Suspect]
     Indication: MYALGIA
     Dosage: 200 MG, ONCE
     Route: 048
     Dates: start: 20131211, end: 20131212
  2. ADVIL [Suspect]
     Indication: PAIN
  3. ADVIL [Suspect]
     Indication: INFLAMMATION
  4. ADVIL [Suspect]
     Indication: ARTHRITIS

REACTIONS (2)
  - Feeling abnormal [Not Recovered/Not Resolved]
  - Sedation [Not Recovered/Not Resolved]
